FAERS Safety Report 8850716 (Version 2)
Quarter: 2015Q2

REPORT INFORMATION
  Report Type: Report from Study
  Country: US (occurrence: US)
  Receive Date: 20121019
  Receipt Date: 20150423
  Transmission Date: 20150821
  Serious: Yes (Hospitalization)
  Sender: FDA-Public Use
  Company Number: US-ROCHE-1116013

PATIENT
  Age: 19 Year
  Sex: Female

DRUGS (4)
  1. NUTROPIN AQ [Suspect]
     Active Substance: SOMATROPIN
     Indication: TURNER^S SYNDROME
     Dosage: 0.6 FOR 16 DAYS AND THEN 1.2 MG
     Route: 058
     Dates: start: 20080108, end: 20080415
  2. NUTROPIN AQ [Suspect]
     Active Substance: SOMATROPIN
     Dosage: 7 INJECTION PER WEEK
     Route: 058
  3. NUTROPIN AQ [Suspect]
     Active Substance: SOMATROPIN
     Dosage: 7 INJECTION PER WEEK
     Route: 058
  4. NUTROPIN AQ [Suspect]
     Active Substance: SOMATROPIN
     Dosage: 0.6 FOR 16 DAYS AND THEN 1.2 MG
     Route: 058
     Dates: start: 20080804, end: 200811

REACTIONS (10)
  - Synovitis [Unknown]
  - Urinary tract infection [Recovered/Resolved]
  - Arthralgia [Recovering/Resolving]
  - Malaise [Unknown]
  - Skin exfoliation [Unknown]
  - Arthralgia [Unknown]
  - Conjunctivitis [Unknown]
  - Arthritis infective [Unknown]
  - Pyrexia [Unknown]
  - Rash [Unknown]

NARRATIVE: CASE EVENT DATE: 200804
